FAERS Safety Report 5391505-8 (Version None)
Quarter: 2007Q3

REPORT INFORMATION
  Report Type: 
  Country: None (occurrence: None)
  Receive Date: 20070719
  Receipt Date: 20070710
  Transmission Date: 20080115
  Serious: Yes (Hospitalization)
  Sender: FDA-Public Use
  Company Number: JP-SANOFI-SYNTHELABO-A01200701217

PATIENT
  Sex: Male
  Weight: 62.4 kg

DRUGS (7)
  1. SILECE [Concomitant]
     Indication: INSOMNIA
     Route: 048
  2. RIZE [Concomitant]
     Indication: DRUG USE FOR UNKNOWN INDICATION
     Route: 048
  3. NIVADIL [Concomitant]
     Indication: HYPERTENSION
     Route: 048
  4. ALMARL [Concomitant]
     Indication: HYPERTENSION
     Route: 048
  5. ADALAT [Concomitant]
     Indication: HYPERTENSION
     Route: 048
  6. TENORMIN [Concomitant]
     Indication: HYPERTENSION
     Route: 048
  7. PLAVIX [Suspect]
     Indication: CEREBRAL INFARCTION
     Route: 048
     Dates: start: 20070131, end: 20070202

REACTIONS (1)
  - OCULOMUCOCUTANEOUS SYNDROME [None]
